FAERS Safety Report 5318357-6 (Version None)
Quarter: 2007Q2

REPORT INFORMATION
  Report Type: 
  Country: None (occurrence: None)
  Receive Date: 20070507
  Receipt Date: 20070425
  Transmission Date: 20071010
  Serious: Yes (Hospitalization, Other)
  Sender: FDA-Public Use
  Company Number: US-SHR-US-2006-023814

PATIENT
  Age: 79 Year
  Sex: Male
  Weight: 71 kg

DRUGS (12)
  1. MAGNEVIST [Suspect]
     Indication: ANGIOGRAM
     Dosage: UNK, 1 DOSE
     Dates: start: 20060807, end: 20060807
  2. BETAPACE [Concomitant]
  3. ALLOPURINOL [Concomitant]
     Dosage: 300 MG, 1X/DAY
  4. HYDRALAZINE HCL [Concomitant]
     Dosage: 25 MG, 3X/DAY
  5. PROCARDIA [Concomitant]
     Dates: end: 20060801
  6. FLU ^CONNAUGHT^ [Concomitant]
     Dates: start: 20060801, end: 20060801
  7. ECOTRIN [Concomitant]
     Dosage: 81 MG, 1X/DAY
  8. COLCHICINE [Concomitant]
     Dosage: .6 MG, AS REQ'D
  9. NEXIUM [Concomitant]
     Dosage: 40 MG, 1X/DAY
  10. RENAGEL [Concomitant]
     Dosage: 800 MG, 3X/DAY
  11. TYLENOL W/ CODEINE NO. 3 [Concomitant]
  12. PROCARDIA XL [Concomitant]
     Dosage: 30 MG, 1X/DAY

REACTIONS (20)
  - ANAEMIA [None]
  - ANXIETY [None]
  - ASTHENIA [None]
  - BLOOD GLUCOSE INCREASED [None]
  - BLOOD PRESSURE DECREASED [None]
  - CARDIAC FAILURE [None]
  - DEHYDRATION [None]
  - DEPRESSION [None]
  - DIZZINESS [None]
  - FEELING ABNORMAL [None]
  - GENERALISED ERYTHEMA [None]
  - GOUTY ARTHRITIS [None]
  - HYPERSENSITIVITY [None]
  - INFLUENZA LIKE ILLNESS [None]
  - OSTEOARTHRITIS [None]
  - PHARYNGEAL ERYTHEMA [None]
  - PHARYNGEAL OEDEMA [None]
  - RENAL FAILURE [None]
  - SLEEP DISORDER [None]
  - TREMOR [None]
